FAERS Safety Report 12618147 (Version 1)
Quarter: 2016Q3

REPORT INFORMATION
  Report Type: Spontaneous
  Country: US (occurrence: US)
  Receive Date: 20160803
  Receipt Date: 20160803
  Transmission Date: 20161109
  Serious: Yes (Other)
  Sender: FDA-Public Use
  Company Number: US-LUPIN PHARMACEUTICALS INC.-E2B_00005889

PATIENT
  Sex: Female

DRUGS (4)
  1. CEPHALEXIN CAPSULES USP 500MG [Suspect]
     Active Substance: CEPHALEXIN
     Indication: CELLULITIS
     Dates: start: 20160715, end: 20160715
  2. CEPHALEXIN CAPSULES USP 500MG [Suspect]
     Active Substance: CEPHALEXIN
     Indication: CELLULITIS
  3. IMODIUM [Concomitant]
     Active Substance: LOPERAMIDE HYDROCHLORIDE
     Indication: PRODUCT USED FOR UNKNOWN INDICATION
     Route: 065
  4. FERRO SULPHATE [Concomitant]
     Indication: PRODUCT USED FOR UNKNOWN INDICATION
     Route: 065

REACTIONS (5)
  - Cellulitis [Recovered/Resolved]
  - Rash papular [Recovered/Resolved]
  - Lip swelling [Recovered/Resolved]
  - Feeling hot [Recovered/Resolved]
  - Chills [Recovered/Resolved]

NARRATIVE: CASE EVENT DATE: 20160715
